FAERS Safety Report 24245025 (Version 2)
Quarter: 2024Q3

REPORT INFORMATION
  Report Type: Report from Study
  Country: US (occurrence: US)
  Receive Date: 20240823
  Receipt Date: 20240918
  Transmission Date: 20241017
  Serious: Yes (Hospitalization, Other)
  Sender: GILEAD
  Company Number: US-GILEAD-2024-0680465

PATIENT
  Sex: Female

DRUGS (3)
  1. AMBRISENTAN [Suspect]
     Active Substance: AMBRISENTAN
     Indication: Pulmonary hypertension
     Dosage: 5 MG, QD
     Route: 065
     Dates: start: 20220923
  2. ADEMPAS [Concomitant]
     Active Substance: RIOCIGUAT
  3. XARELTO [Concomitant]
     Active Substance: RIVAROXABAN

REACTIONS (5)
  - Lung disorder [Unknown]
  - Urinary tract infection [Unknown]
  - Fungal infection [Unknown]
  - Diabetes mellitus [Unknown]
  - General physical health deterioration [Unknown]
